FAERS Safety Report 8518475-5 (Version None)
Quarter: 2012Q3

REPORT INFORMATION
  Report Type: 
  Country: None (occurrence: None)
  Receive Date: 20120718
  Receipt Date: 20120330
  Transmission Date: 20120928
  Serious: No
  Sender: FDA-Public Use
  Company Number: US-BRISTOL-MYERS SQUIBB COMPANY-16487183

PATIENT
  Age: 65 Year
  Sex: Female
  Weight: 58 kg

DRUGS (2)
  1. TRICOR [Suspect]
     Indication: FACTOR V LEIDEN MUTATION
  2. COUMADIN [Suspect]
     Indication: FACTOR V LEIDEN MUTATION

REACTIONS (1)
  - DRUG INEFFECTIVE [None]
